FAERS Safety Report 5816398-3 (Version None)
Quarter: 2008Q3

REPORT INFORMATION
  Report Type: 
  Country: None (occurrence: None)
  Receive Date: 20080721
  Receipt Date: 20080325
  Transmission Date: 20090109
  Serious: No
  Sender: FDA-Public Use
  Company Number: US-BAUSCH-2008BL001323

PATIENT
  Age: 60 Year
  Sex: Male

DRUGS (3)
  1. OPCON-A [Suspect]
     Indication: OCULAR HYPERAEMIA
     Route: 047
     Dates: start: 20080201
  2. OPCON-A [Suspect]
     Indication: ASTHENOPIA
     Route: 047
     Dates: start: 20080201
  3. CENTRUM SILVER [Concomitant]
     Indication: VITAMIN SUPPLEMENTATION

REACTIONS (4)
  - EYE IRRITATION [None]
  - LACRIMATION INCREASED [None]
  - NO REACTION ON PREVIOUS EXPOSURE TO DRUG [None]
  - PHARMACEUTICAL PRODUCT COMPLAINT [None]
